FAERS Safety Report 9391710 (Version 1)
Quarter: 2013Q3

REPORT INFORMATION
  Report Type: Spontaneous
  Country: FR (occurrence: FR)
  Receive Date: 20130709
  Receipt Date: 20130709
  Transmission Date: 20140515
  Serious: Yes (Death)
  Sender: FDA-Public Use
  Company Number: PHHY2013FR072044

PATIENT
  Age: 88 Year
  Sex: Male

DRUGS (9)
  1. FUROSEMIDE SANDOZ [Suspect]
     Route: 048
     Dates: start: 20130610
  2. RAMIPRIL SANDOZ [Suspect]
     Route: 048
  3. CARBOCISTEINE SANDOZ [Suspect]
     Route: 048
  4. ?LYMPHOSTAT [Suspect]
     Route: 048
  5. FUROSEMIDE TEVA [Suspect]
     Dosage: 40 MG, BID
     Route: 048
     Dates: end: 20130610
  6. KARDEGIC [Suspect]
     Route: 048
  7. DOLIPRANE [Suspect]
     Route: 048
  8. DUROGESIC [Suspect]
     Route: 062
     Dates: start: 20130530
  9. SERESTA [Suspect]
     Dosage: 50 MG, DAILY

REACTIONS (2)
  - Death [Fatal]
  - Oedema peripheral [None]
